FAERS Safety Report 12607834 (Version 1)
Quarter: 2016Q3

REPORT INFORMATION
  Report Type: Spontaneous
  Country: US (occurrence: US)
  Receive Date: 20160729
  Receipt Date: 20160729
  Transmission Date: 20161109
  Serious: Yes (Death)
  Sender: FDA-Public Use
  Company Number: US-LPDUSPRD-20160648

PATIENT
  Age: 20 Year
  Sex: Male

DRUGS (2)
  1. CYCLOSPORINE INJECTION, USP (866-10) [Suspect]
     Active Substance: CYCLOSPORINE
     Dosage: DOSE NOT PROVIDED
     Route: 065
  2. STEROIDS [Concomitant]
     Active Substance: UNSPECIFIED INGREDIENT
     Dosage: DOSE NOT PROVIDED
     Route: 065

REACTIONS (1)
  - West Nile viral infection [Fatal]
